APPROVED DRUG PRODUCT: DIAZEPAM INTENSOL
Active Ingredient: DIAZEPAM
Strength: 5MG/ML
Dosage Form/Route: CONCENTRATE;ORAL
Application: A071415 | Product #001 | TE Code: AA
Applicant: HIKMA PHARMACEUTICALS USA INC
Approved: Apr 3, 1987 | RLD: No | RS: Yes | Type: RX